FAERS Safety Report 8258209-5 (Version None)
Quarter: 2012Q2

REPORT INFORMATION
  Report Type: 
  Country: None (occurrence: None)
  Receive Date: 20120404
  Receipt Date: 20120330
  Transmission Date: 20120825
  Serious: Yes (Hospitalization)
  Sender: FDA-Public Use
  Company Number: PHHY2012FR027963

PATIENT
  Sex: Female

DRUGS (5)
  1. EFFEXOR [Concomitant]
  2. LEVOTHYROXINE SODIUM [Concomitant]
  3. ZOLPIDEM TARTRATE [Concomitant]
  4. LEXOMIL [Concomitant]
  5. FEMARA [Suspect]
     Indication: BREAST CANCER
     Dosage: UNK UKN, UNK
     Route: 048
     Dates: start: 20090101

REACTIONS (5)
  - ASTHENIA [None]
  - CONGESTIVE CARDIOMYOPATHY [None]
  - DYSPNOEA [None]
  - EJECTION FRACTION DECREASED [None]
  - CARDIAC FAILURE [None]
